FAERS Safety Report 6611876-1 (Version None)
Quarter: 2010Q1

REPORT INFORMATION
  Report Type: 
  Country: None (occurrence: None)
  Receive Date: 20100303
  Receipt Date: 20100224
  Transmission Date: 20100710
  Serious: Yes (Hospitalization, Other)
  Sender: FDA-Public Use
  Company Number: US-BAXTER-2009BH017112

PATIENT
  Age: 61 Year
  Sex: Female

DRUGS (3)
  1. GAMMAGARD LIQUID [Suspect]
     Indication: GUILLAIN-BARRE SYNDROME
     Route: 065
  2. GAMMAGARD LIQUID [Suspect]
     Route: 065
  3. GAMMAGARD LIQUID [Suspect]
     Route: 065

REACTIONS (4)
  - DYSPNOEA [None]
  - HAEMATOCRIT DECREASED [None]
  - HAEMOGLOBIN DECREASED [None]
  - HAEMOLYSIS [None]
